FAERS Safety Report 9345623 (Version 2)
Quarter: 2013Q2

REPORT INFORMATION
  Report Type: Spontaneous
  Country: FR (occurrence: FR)
  Receive Date: 20130613
  Receipt Date: 20130624
  Transmission Date: 20140414
  Serious: Yes (Other)
  Sender: FDA-Public Use
  Company Number: FR-ROCHE-1236187

PATIENT
  Sex: Male
  Weight: 60 kg

DRUGS (3)
  1. AVASTIN [Suspect]
     Indication: LUNG CANCER METASTATIC
     Route: 042
     Dates: start: 20121109, end: 20130515
  2. ALIMTA [Suspect]
     Indication: LUNG CANCER METASTATIC
     Route: 042
     Dates: start: 20121109, end: 20130515
  3. CISPLATIN [Concomitant]

REACTIONS (1)
  - Renal failure acute [Not Recovered/Not Resolved]
